FAERS Safety Report 6140805-2 (Version None)
Quarter: 2009Q1

REPORT INFORMATION
  Report Type: 
  Country: None (occurrence: None)
  Receive Date: 20090331
  Receipt Date: 20090325
  Transmission Date: 20090719
  Serious: Yes (Life-Threatening)
  Sender: FDA-Public Use
  Company Number: 189423USA

PATIENT
  Age: 87 Year
  Sex: Female

DRUGS (6)
  1. BISOPROLOL FUMARATE [Suspect]
     Indication: MYOCARDIAL ISCHAEMIA
     Dosage: 2.5 MG (1 IN 1 - 2) ORAL
     Route: 048
     Dates: start: 20080819, end: 20080911
  2. AMIODARONE HCL [Suspect]
     Indication: ATRIAL FIBRILLATION
     Dosage: 200 MG ORAL
     Route: 048
     Dates: start: 20080619, end: 20080911
  3. RAMIPRIL [Concomitant]
  4. DONEPEZIL HCL [Concomitant]
  5. SERTRALINE HCL [Concomitant]
  6. MIRTAZAPINE [Concomitant]

REACTIONS (6)
  - ATRIOVENTRICULAR BLOCK SECOND DEGREE [None]
  - CARDIO-RESPIRATORY ARREST [None]
  - DRUG INTERACTION [None]
  - ELECTROCARDIOGRAM QT PROLONGED [None]
  - MYOCARDIAL INFARCTION [None]
  - SINUS BRADYCARDIA [None]
